FAERS Safety Report 7956626-1 (Version None)
Quarter: 2011Q4

REPORT INFORMATION
  Report Type: 
  Country: None (occurrence: None)
  Receive Date: 20111205
  Receipt Date: 20111128
  Transmission Date: 20120403
  Serious: Yes (Other)
  Sender: FDA-Public Use
  Company Number: US-PFIZER INC-2011282478

PATIENT
  Sex: Female

DRUGS (8)
  1. NEURONTIN [Suspect]
     Indication: FIBROMYALGIA
     Dosage: 600 MG, 3X/DAY
  2. LYRICA [Suspect]
     Indication: FIBROMYALGIA
     Dosage: 150 MG, 2X/DAY
     Route: 048
     Dates: start: 20110601, end: 20110701
  3. VICODIN [Concomitant]
     Indication: PAIN
     Dosage: 7/500MG OR 5/500MG, 1 TO 2 TABLETS ORALLY EVERY 4 -6 HOUR AS NEEDED
     Route: 048
  4. ELAVIL [Suspect]
     Indication: SLEEP DISORDER
     Dosage: UNK
  5. KLONOPIN [Concomitant]
     Indication: RESTLESS LEGS SYNDROME
     Dosage: UNK
  6. REQUIP [Concomitant]
     Indication: RESTLESS LEGS SYNDROME
     Dosage: UNK
  7. VALIUM [Concomitant]
     Dosage: UNK
  8. CELEXA [Concomitant]
     Indication: DEPRESSION
     Dosage: 40 MG, DAILY

REACTIONS (5)
  - EUPHORIC MOOD [None]
  - DISTURBANCE IN ATTENTION [None]
  - IMPAIRED WORK ABILITY [None]
  - WEIGHT INCREASED [None]
  - PANIC ATTACK [None]
